FAERS Safety Report 6811372-2 (Version None)
Quarter: 2010Q2

REPORT INFORMATION
  Report Type: 
  Country: None (occurrence: None)
  Receive Date: 20100629
  Receipt Date: 20100629
  Transmission Date: 20101027
  Serious: No
  Sender: FDA-Public Use
  Company Number: None

PATIENT
  Sex: Female
  Weight: 51.7101 kg

DRUGS (2)
  1. CLINDAMYCIN HCL [Suspect]
     Indication: ENDODONTIC PROCEDURE
     Dosage: 28 PILLS 4 A DAY
     Dates: start: 20100413
  2. CLINDAMYCIN HCL [Suspect]
     Indication: PREOPERATIVE CARE
     Dosage: 28 PILLS 4 A DAY
     Dates: start: 20100413

REACTIONS (3)
  - CHAPPED LIPS [None]
  - RASH [None]
  - SWELLING FACE [None]
